FAERS Safety Report 20124635 (Version 1)
Quarter: 2021Q4

REPORT INFORMATION
  Report Type: Spontaneous
  Country: GB (occurrence: GB)
  Receive Date: 20211129
  Receipt Date: 20211129
  Transmission Date: 20220303
  Serious: Yes (Other)
  Sender: FDA-Public Use
  Company Number: GB-DEXPHARM-20211886

PATIENT
  Age: 61 Year
  Sex: Female

DRUGS (4)
  1. VENLAFAXINE [Suspect]
     Active Substance: VENLAFAXINE HYDROCHLORIDE
     Dosage: 37.5 MILLIGRAM DAILY; 1X 37.5, UPPED TO 75 FOR A WEEK OR TWO THEN DROPPED TO 37.5
     Route: 065
  2. VENLAFAXINE [Suspect]
     Active Substance: VENLAFAXINE HYDROCHLORIDE
     Dosage: 75 MILLIGRAM DAILY; 1X 37.5, UPPED TO 75 FOR A WEEK OR TWO THEN DROPPED TO 37.5
     Route: 065
  3. FLUOXETINE [Concomitant]
     Active Substance: FLUOXETINE HYDROCHLORIDE
  4. PROMETHAZINE [Concomitant]
     Active Substance: PROMETHAZINE HYDROCHLORIDE

REACTIONS (6)
  - Nausea [Unknown]
  - Dizziness [Unknown]
  - Agitation [Unknown]
  - Epilepsy [Unknown]
  - Drug intolerance [Unknown]
  - Product substitution [Unknown]
